FAERS Safety Report 6176475-7 (Version None)
Quarter: 2009Q2

REPORT INFORMATION
  Report Type: 
  Country: None (occurrence: None)
  Receive Date: 20090501
  Receipt Date: 20090422
  Transmission Date: 20091009
  Serious: Yes (Other)
  Sender: FDA-Public Use
  Company Number: PHHY2009BR15497

PATIENT
  Age: 88 Year
  Sex: Female
  Weight: 60 kg

DRUGS (3)
  1. EXELON [Suspect]
     Indication: DEMENTIA ALZHEIMER'S TYPE
     Dosage: 1.5 MG, QD
     Route: 048
     Dates: start: 20070101
  2. EXELON [Suspect]
     Dosage: 1.5 MG, BID
     Route: 048
  3. SERTRALINE HCL [Concomitant]
     Indication: DEPRESSION
     Dosage: 1 TABLET PER DAY IN ALTERNATIVE DAYS
     Route: 048

REACTIONS (10)
  - ABNORMAL BEHAVIOUR [None]
  - CONDITION AGGRAVATED [None]
  - DISEASE PROGRESSION [None]
  - DIZZINESS [None]
  - EAR DISORDER [None]
  - EATING DISORDER [None]
  - GAIT DISTURBANCE [None]
  - MEMORY IMPAIRMENT [None]
  - PAIN IN EXTREMITY [None]
  - SPEECH DISORDER [None]
